FAERS Safety Report 20690498 (Version 1)
Quarter: 2022Q2

REPORT INFORMATION
  Report Type: Spontaneous
  Country: US (occurrence: US)
  Receive Date: 20220408
  Receipt Date: 20220408
  Transmission Date: 20220720
  Serious: No
  Sender: FDA-Public Use
  Company Number: US-TEVA-2022-US-2017808

PATIENT
  Sex: Female

DRUGS (4)
  1. METRONIDAZOLE [Suspect]
     Active Substance: METRONIDAZOLE
     Indication: Constipation
     Dosage: TOOK THREE OF THE METRONIDAZOLE TABLETS AND TWO OF THE CIPROFLOXACIN TABLETS FOR FOUR DAYS
     Route: 065
  2. METRONIDAZOLE [Suspect]
     Active Substance: METRONIDAZOLE
     Dosage: PREVIOUSLY
     Route: 065
  3. NYSTATIN [Concomitant]
     Active Substance: NYSTATIN
     Route: 048
  4. CIPROFLOXACIN HYDROCHLORIDE [Concomitant]
     Active Substance: CIPROFLOXACIN HYDROCHLORIDE
     Dosage: TOOK THREE OF THE METRONIDAZOLE TABLETS AND TWO OF THE CIPROFLOXACIN TABLETS FOR FOUR DAYS
     Route: 065

REACTIONS (6)
  - Product use in unapproved indication [Unknown]
  - Tongue discolouration [Unknown]
  - Oral candidiasis [Unknown]
  - Taste disorder [Unknown]
  - Drug intolerance [Unknown]
  - Product use issue [Unknown]
